FAERS Safety Report 17802116 (Version 2)
Quarter: 2022Q3

REPORT INFORMATION
  Report Type: Spontaneous
  Country: US (occurrence: US)
  Receive Date: 20200519
  Receipt Date: 20220714
  Transmission Date: 20221027
  Serious: No
  Sender: FDA-Public Use
  Company Number: US-PFIZER INC-2020197837

PATIENT
  Age: 49 Year
  Sex: Female

DRUGS (3)
  1. XELJANZ XR [Interacting]
     Active Substance: TOFACITINIB CITRATE
     Indication: Rheumatoid arthritis
     Dosage: 11 MG, DAILY
     Route: 048
     Dates: start: 2019
  2. TIZANIDINE [Interacting]
     Active Substance: TIZANIDINE
     Dosage: UNK
  3. MODAFINIL [Interacting]
     Active Substance: MODAFINIL
     Dosage: UNK

REACTIONS (8)
  - Diarrhoea [Unknown]
  - Oropharyngeal pain [Unknown]
  - Rhinorrhoea [Unknown]
  - Pruritus [Unknown]
  - Headache [Unknown]
  - Pain [Unknown]
  - Pain in extremity [Unknown]
  - Drug interaction [Unknown]

NARRATIVE: CASE EVENT DATE: 20200501
